FAERS Safety Report 8809534 (Version 1)
Quarter: 2012Q4

REPORT INFORMATION
  Report Type: 
  Country: SE (occurrence: SE)
  Receive Date: 20120926
  Receipt Date: 20120926
  Transmission Date: 20130627
  Serious: Yes (Hospitalization)
  Sender: FDA-Public Use
  Company Number: SE-PFIZER INC-2012233551

PATIENT
  Age: 73 Year
  Sex: Male
  Weight: 89.2 kg

DRUGS (12)
  1. GENOTROPIN [Suspect]
     Indication: GROWTH HORMONE DEFICIENCY
     Dosage: 0.4 mg, 1x/day (7 injections/week)
     Route: 058
     Dates: start: 20021125
  2. SELOKEN [Concomitant]
     Indication: ESSENTIAL HYPERTENSION
     Dosage: UNK
     Dates: start: 19910101
  3. ACTRAPID HUMAN [Concomitant]
     Indication: DIABETES MELLITUS
     Dosage: UNK
     Dates: start: 19960101
  4. BEZALIP [Concomitant]
     Indication: HYPERLIPIDAEMIA
     Dosage: UNK
     Dates: start: 19960101
  5. INSULATARD [Concomitant]
     Indication: DIABETES MELLITUS
     Dosage: UNK
     Dates: start: 19960101
  6. WARAN [Concomitant]
     Indication: EMBOLISM ARTERIAL
     Dosage: UNK
     Dates: start: 19960101
  7. WARAN [Concomitant]
     Indication: THROMBOSIS
  8. TESTOSTERONE [Concomitant]
     Indication: BLOOD LUTEINISING HORMONE DECREASED
     Dosage: UNK
     Dates: start: 19970930
  9. TESTOSTERONE [Concomitant]
     Indication: BLOOD FOLLICLE STIMULATING HORMONE DECREASED
  10. TESTOSTERONE [Concomitant]
     Indication: HYPOGONADISM MALE
  11. BENADON [Concomitant]
     Indication: HYPOVITAMINOSIS
     Dosage: UNK
     Dates: start: 19980101
  12. BENERVA [Concomitant]
     Indication: MONONEURITIS
     Dosage: UNK
     Dates: start: 19980101

REACTIONS (1)
  - Cardiac disorder [Unknown]
